FAERS Safety Report 6195686-8 (Version None)
Quarter: 2009Q2

REPORT INFORMATION
  Report Type: 
  Country: None (occurrence: None)
  Receive Date: 20090519
  Receipt Date: 20090505
  Transmission Date: 20091009
  Serious: Yes (Hospitalization, Other)
  Sender: FDA-Public Use
  Company Number: DE-GENENTECH-282933

PATIENT
  Sex: Female

DRUGS (4)
  1. RANIBIZUMAB [Suspect]
     Indication: MACULAR DEGENERATION
     Dosage: UNK
     Route: 031
     Dates: start: 20080507
  2. LUTEIN/ZEAXANTHIN [Concomitant]
     Indication: DRUG USE FOR UNKNOWN INDICATION
  3. VITALUX [Concomitant]
     Indication: DRUG USE FOR UNKNOWN INDICATION
  4. FLUORESCEIN [Concomitant]
     Indication: DRUG USE FOR UNKNOWN INDICATION

REACTIONS (2)
  - RETINAL VEIN THROMBOSIS [None]
  - VITRECTOMY [None]
